FAERS Safety Report 4522553-5 (Version None)
Quarter: 2004Q4

REPORT INFORMATION
  Report Type: 
  Country: None (occurrence: None)
  Receive Date: 20041207
  Receipt Date: 20041122
  Transmission Date: 20050328
  Serious: Yes (Hospitalization, Other)
  Sender: FDA-Public Use
  Company Number: DE_041014400

PATIENT
  Age: 57 Year
  Sex: Male
  Weight: 101 kg

DRUGS (12)
  1. GEMZAR [Suspect]
     Indication: NON-SMALL CELL LUNG CANCER
     Dosage: 2000 MG
     Dates: start: 20040623, end: 20040831
  2. DOCETAXEL [Suspect]
     Indication: NON-SMALL CELL LUNG CANCER
     Dosage: 150 MG
     Dates: start: 20040629, end: 20040831
  3. GRANISETRON [Concomitant]
  4. DEXAMETHASONE [Concomitant]
  5. RANITIDINE [Concomitant]
  6. CLEMASTINE [Concomitant]
  7. VERGENTAN (ALIZAPRIDE HYDROCHLORIDE) [Concomitant]
  8. TORSEMIDE [Concomitant]
  9. CLEXANE (ENOXAPRARIN SODIUM) [Concomitant]
  10. METFORMIN HCL [Concomitant]
  11. AZUMETOP (METOPROLOL TARTRATE) [Concomitant]
  12. BONDRONAT [Concomitant]

REACTIONS (28)
  - CHOLELITHIASIS [None]
  - CONFUSIONAL STATE [None]
  - DECUBITUS ULCER [None]
  - DERMATITIS EXFOLIATIVE [None]
  - DISORIENTATION [None]
  - ERYSIPELOID [None]
  - ERYTHEMA [None]
  - EXCESSIVE GRANULATION TISSUE [None]
  - FIBROSIS [None]
  - HEPATIC FAILURE [None]
  - HEPATIC STEATOSIS [None]
  - HEPATOMEGALY [None]
  - HISTOLOGY ABNORMAL [None]
  - HYPOCALCAEMIA [None]
  - HYPOPROTEINAEMIA [None]
  - JAUNDICE [None]
  - LUNG CONSOLIDATION [None]
  - LYMPHANGIOSIS CARCINOMATOSA [None]
  - MALIGNANT NEOPLASM PROGRESSION [None]
  - MUCOSAL INFLAMMATION [None]
  - NON-SMALL CELL LUNG CANCER [None]
  - PANCYTOPENIA [None]
  - PLEURAL EFFUSION [None]
  - PSORIASIS [None]
  - RENAL IMPAIRMENT [None]
  - SKIN DISORDER [None]
  - SWEAT GLAND DISORDER [None]
  - TACHYPNOEA [None]
